FAERS Safety Report 18893162 (Version 3)
Quarter: 2021Q1

REPORT INFORMATION
  Report Type: Other
  Country: US (occurrence: US)
  Receive Date: 20210215
  Receipt Date: 20210327
  Transmission Date: 20210420
  Serious: Yes (Hospitalization)
  Sender: FDA-Public Use
  Company Number: US-ROCHE-2768118

PATIENT
  Sex: Male

DRUGS (6)
  1. ESBRIET [Suspect]
     Active Substance: PIRFENIDONE
     Indication: IDIOPATHIC PULMONARY FIBROSIS
  2. ESBRIET [Suspect]
     Active Substance: PIRFENIDONE
     Indication: PNEUMONIA
     Dosage: TAKE 1 TABLET BY MOUTH WITH FOOD THREE TIMES A DAY
     Route: 048
  3. ESBRIET [Suspect]
     Active Substance: PIRFENIDONE
     Indication: INTERSTITIAL LUNG DISEASE
     Dosage: TAKE 1 TABLET BY MOUTH 3 TIMES A DAY FOR 7 DAYS
     Route: 048
  4. ESBRIET [Suspect]
     Active Substance: PIRFENIDONE
     Indication: INTERSTITIAL LUNG DISEASE
  5. ESBRIET [Suspect]
     Active Substance: PIRFENIDONE
     Indication: IDIOPATHIC PULMONARY FIBROSIS
     Dosage: TAKE 2 TABLET(S) BY MOUTH 3 TIMES A DAY FOR 7 DAYS
     Route: 048
  6. ESBRIET [Suspect]
     Active Substance: PIRFENIDONE
     Indication: PNEUMONIA
     Dosage: 1 CAPSULE THRICE A DAY FOR 7 DAYS THEN 2 CAPSULES THRICE A DAY FOR 7 DAYS, THEN 1 CAPSULE THRICE A D
     Route: 048

REACTIONS (1)
  - COVID-19 [Unknown]
